FAERS Safety Report 10312783 (Version 1)
Quarter: 2014Q3

REPORT INFORMATION
  Report Type: Spontaneous
  Country: US (occurrence: None)
  Receive Date: 20140717
  Receipt Date: 20140717
  Transmission Date: 20150326
  Serious: Yes (Other)
  Sender: FDA-Public Use
  Company Number: None

PATIENT
  Age: 57 Year
  Sex: Female
  Weight: 104.78 kg

DRUGS (1)
  1. LIPITOR [Suspect]
     Active Substance: ATORVASTATIN CALCIUM
     Indication: BLOOD CHOLESTEROL INCREASED
     Dosage: 1 AT BEDTIME; ONCE DAILY
     Dates: start: 20140515, end: 20140630

REACTIONS (5)
  - Skin swelling [None]
  - Rash generalised [None]
  - Skin fissures [None]
  - Blood creatine phosphokinase increased [None]
  - Skin haemorrhage [None]

NARRATIVE: CASE EVENT DATE: 20140516
